FAERS Safety Report 19095919 (Version 3)
Quarter: 2022Q3

REPORT INFORMATION
  Report Type: Spontaneous
  Country: JP (occurrence: JP)
  Receive Date: 20210406
  Receipt Date: 20220628
  Transmission Date: 20221026
  Serious: Yes (Hospitalization, Other)
  Sender: FDA-Public Use
  Company Number: NVSJ2021JP004063

PATIENT
  Age: 23 Year
  Sex: Female

DRUGS (7)
  1. MAYZENT [Suspect]
     Active Substance: SIPONIMOD
     Indication: Secondary progressive multiple sclerosis
     Dosage: 0.25 MG
     Route: 048
     Dates: start: 20210302, end: 20210303
  2. MAYZENT [Suspect]
     Active Substance: SIPONIMOD
     Dosage: 0.5 MG
     Route: 048
     Dates: start: 20210304, end: 20210304
  3. MAYZENT [Suspect]
     Active Substance: SIPONIMOD
     Dosage: 0.75 MG
     Route: 048
     Dates: start: 20210305, end: 20210305
  4. MAYZENT [Suspect]
     Active Substance: SIPONIMOD
     Dosage: 0.5 MG
     Route: 048
     Dates: start: 20210306
  5. MAYZENT [Suspect]
     Active Substance: SIPONIMOD
     Dosage: 1 MG
     Route: 048
     Dates: start: 20210315
  6. MAYZENT [Suspect]
     Active Substance: SIPONIMOD
     Dosage: UNK MG
     Route: 048
     Dates: start: 20210323, end: 20210418
  7. BRONAL//PREDNISOLONE [Concomitant]
     Indication: Product used for unknown indication
     Dosage: 10 MG
     Route: 048
     Dates: start: 20210209

REACTIONS (7)
  - Lymphocyte count decreased [Recovering/Resolving]
  - Multiple sclerosis relapse [Unknown]
  - Renal impairment [Recovering/Resolving]
  - Urinary tract infection [Unknown]
  - Urethral pain [Unknown]
  - Haematuria [Unknown]
  - Therapeutic product effect incomplete [Unknown]

NARRATIVE: CASE EVENT DATE: 20210302
